FAERS Safety Report 20684523 (Version 3)
Quarter: 2022Q2

REPORT INFORMATION
  Report Type: Spontaneous
  Country: US (occurrence: US)
  Receive Date: 20220407
  Receipt Date: 20220622
  Transmission Date: 20220721
  Serious: No
  Sender: FDA-Public Use
  Company Number: US-TEVA-2022-US-2017379

PATIENT
  Age: 50 Year
  Sex: Female
  Weight: 58.06 kg

DRUGS (6)
  1. PROVIGIL [Suspect]
     Active Substance: MODAFINIL
     Indication: Narcolepsy
     Route: 065
     Dates: start: 2010
  2. PROVIGIL [Suspect]
     Active Substance: MODAFINIL
     Dosage: 400 MILLIGRAM DAILY;
     Route: 065
  3. PROVIGIL [Suspect]
     Active Substance: MODAFINIL
     Dosage: 200 MILLIGRAM DAILY;
     Route: 065
  4. MODAFINIL [Suspect]
     Active Substance: MODAFINIL
     Indication: Narcolepsy
     Dosage: 400 MILLIGRAM DAILY;
     Route: 065
  5. MODAFINIL [Suspect]
     Active Substance: MODAFINIL
     Indication: Narcolepsy
     Dosage: 400 MILLIGRAM DAILY;
     Route: 065
  6. MODAFINIL [Suspect]
     Active Substance: MODAFINIL
     Indication: Narcolepsy
     Dosage: 400 MILLIGRAM DAILY;
     Route: 065

REACTIONS (10)
  - Somnolence [Unknown]
  - Loss of personal independence in daily activities [Unknown]
  - Feeling abnormal [Unknown]
  - Wrong technique in product usage process [Unknown]
  - Headache [Unknown]
  - Back pain [Unknown]
  - Tongue ulceration [Unknown]
  - Weight increased [Unknown]
  - Therapeutic product effect incomplete [Unknown]
  - Tongue disorder [Unknown]
